FAERS Safety Report 14494574 (Version 1)
Quarter: 2018Q1

REPORT INFORMATION
  Report Type: Spontaneous
  Country: US (occurrence: US)
  Receive Date: 20180206
  Receipt Date: 20180206
  Transmission Date: 20180509
  Serious: No
  Sender: FDA-Public Use
  Company Number: US-AMGEN-USASP2017064746

PATIENT
  Age: 70 Year
  Sex: Female
  Weight: 95.24 kg

DRUGS (1)
  1. NEULASTA [Suspect]
     Active Substance: PEGFILGRASTIM
     Indication: PROPHYLAXIS
     Dosage: 6 MG, UNK
     Route: 058

REACTIONS (6)
  - Platelet count decreased [Unknown]
  - Blood glucose increased [Unknown]
  - Underdose [Unknown]
  - Accidental exposure to product [Unknown]
  - Neutrophil count decreased [Recovered/Resolved]
  - Wrong technique in product usage process [Unknown]

NARRATIVE: CASE EVENT DATE: 20170426
